FAERS Safety Report 19493579 (Version 1)
Quarter: 2021Q3

REPORT INFORMATION
  Report Type: Report from Study
  Country: CA (occurrence: CA)
  Receive Date: 20210705
  Receipt Date: 20210705
  Transmission Date: 20211014
  Serious: Yes (Death)
  Sender: FDA-Public Use
  Company Number: CA-PFIZER INC-2021746423

PATIENT
  Sex: Female

DRUGS (24)
  1. GRAVOL [Concomitant]
     Active Substance: DIMENHYDRINATE
  2. HYDROMORPHONE [Concomitant]
     Active Substance: HYDROMORPHONE
  3. METHYLPREDNISOLONE SODIUM SUCCINATE. [Concomitant]
     Active Substance: METHYLPREDNISOLONE SODIUM SUCCINATE
  4. TACROLIMUS. [Concomitant]
     Active Substance: TACROLIMUS
  5. VITAMIN D3 [Concomitant]
     Active Substance: CHOLECALCIFEROL
  6. AMITRIPTYLINE [Concomitant]
     Active Substance: AMITRIPTYLINE
  7. DOCUSATE SODIUM. [Concomitant]
     Active Substance: DOCUSATE SODIUM
  8. MAGNESIUM CLOFIBRATE [Concomitant]
  9. PREDNISONE. [Concomitant]
     Active Substance: PREDNISONE
  10. SYNTHROID [Concomitant]
     Active Substance: LEVOTHYROXINE SODIUM
  11. RITUXIMAB. [Suspect]
     Active Substance: RITUXIMAB
     Indication: AUTOIMMUNE HEPATITIS
     Dosage: 1000 MG 1 EVERY 15 DAYS
     Route: 042
  12. TYLENOL [Concomitant]
     Active Substance: ACETAMINOPHEN
  13. AZATHIOPRINE. [Concomitant]
     Active Substance: AZATHIOPRINE
  14. HYDROXYZINE [Concomitant]
     Active Substance: HYDROXYZINE HYDROCHLORIDE
  15. FENTANYL. [Concomitant]
     Active Substance: FENTANYL
  16. FLUOXETINE [Concomitant]
     Active Substance: FLUOXETINE HYDROCHLORIDE
  17. FUROSEMIDE. [Concomitant]
     Active Substance: FUROSEMIDE
     Route: 065
  18. GABAPENTIN. [Concomitant]
     Active Substance: GABAPENTIN
  19. ZOLMITRIPTAN. [Concomitant]
     Active Substance: ZOLMITRIPTAN
  20. LORAZEPAM. [Concomitant]
     Active Substance: LORAZEPAM
  21. PANTOLOC [PANTOPRAZOLE] [Concomitant]
     Active Substance: PANTOPRAZOLE SODIUM
  22. BENADRYL [Concomitant]
     Active Substance: DIPHENHYDRAMINE HYDROCHLORIDE
  23. DESIPRAMINE [Concomitant]
     Active Substance: DESIPRAMINE
  24. NYSTATIN. [Concomitant]
     Active Substance: NYSTATIN

REACTIONS (1)
  - Death [Fatal]
